FAERS Safety Report 17326158 (Version 1)
Quarter: 2020Q1

REPORT INFORMATION
  Report Type: Spontaneous
  Country: IT (occurrence: IT)
  Receive Date: 20200127
  Receipt Date: 20200127
  Transmission Date: 20200409
  Serious: Yes (Other)
  Sender: FDA-Public Use
  Company Number: IT-MYLANLABS-2020M1008302

PATIENT
  Age: 48 Year
  Sex: Female

DRUGS (3)
  1. DIBASE [Concomitant]
     Active Substance: CHOLECALCIFEROL
     Dosage: 25 KILO-INTERNATIONAL UNIT
     Route: 048
  2. COPEMYLTRI [Suspect]
     Active Substance: GLATIRAMER ACETATE
     Indication: RELAPSING-REMITTING MULTIPLE SCLEROSIS
     Dosage: 40 MILLIGRAM, Q2D
     Route: 058
  3. BIOTIN [Concomitant]
     Active Substance: BIOTIN
     Dosage: 200 MILLIGRAM
     Route: 048

REACTIONS (5)
  - Abdominal pain [Unknown]
  - Choking sensation [Unknown]
  - Burning sensation [Unknown]
  - Diarrhoea [Unknown]
  - Eye irritation [Unknown]

NARRATIVE: CASE EVENT DATE: 20191111
